FAERS Safety Report 10552725 (Version 1)
Quarter: 2014Q4

REPORT INFORMATION
  Report Type: Report from Study
  Country: DE (occurrence: DE)
  Receive Date: 20141029
  Receipt Date: 20141029
  Transmission Date: 20150529
  Serious: Yes (Other)
  Sender: FDA-Public Use
  Company Number: DE-US-EMD SERONO, INC.-7329449

PATIENT
  Age: 32 Year
  Sex: Female

DRUGS (1)
  1. REBIF [Suspect]
     Active Substance: INTERFERON BETA-1A
     Indication: MULTIPLE SCLEROSIS
     Route: 058
     Dates: start: 201101, end: 201409

REACTIONS (5)
  - Acute disseminated encephalomyelitis [Unknown]
  - Proteinuria [Not Recovered/Not Resolved]
  - Hypertension [Recovering/Resolving]
  - Focal segmental glomerulosclerosis [Unknown]
  - Nephrosclerosis [Unknown]

NARRATIVE: CASE EVENT DATE: 201408
